FAERS Safety Report 4874210-3 (Version None)
Quarter: 2005Q4

REPORT INFORMATION
  Report Type: 
  Country: None (occurrence: None)
  Receive Date: 20051201
  Receipt Date: 20050809
  Transmission Date: 20060501
  Serious: No
  Sender: FDA-Public Use
  Company Number: 2005PV000994

PATIENT
  Age: 62 Year
  Sex: Male
  Weight: 104.3273 kg

DRUGS (11)
  1. BYETTA [Suspect]
     Indication: DIABETES MELLITUS NON-INSULIN-DEPENDENT
     Dosage: 5 MCG; BID; SC
     Route: 058
     Dates: start: 20050808
  2. STARLIX [Concomitant]
  3. ACTOS [Concomitant]
  4. LANTUS [Concomitant]
  5. ASPIRIN [Concomitant]
  6. ATENOLOL [Concomitant]
  7. LIPITOR [Concomitant]
  8. DURAGESIC-100 [Concomitant]
  9. NITROGLYCERIN [Concomitant]
  10. PLAVIX [Concomitant]
  11. WELCHOL [Concomitant]

REACTIONS (2)
  - PRURITUS [None]
  - SINUS CONGESTION [None]
